FAERS Safety Report 19715351 (Version 1)
Quarter: 2021Q3

REPORT INFORMATION
  Report Type: Spontaneous
  Country: CN (occurrence: CN)
  Receive Date: 20210818
  Receipt Date: 20210818
  Transmission Date: 20211014
  Serious: Yes (Other)
  Sender: FDA-Public Use
  Company Number: CN-PFIZER INC-202101015343

PATIENT
  Age: 84 Year
  Sex: Female

DRUGS (1)
  1. VFEND [Suspect]
     Active Substance: VORICONAZOLE
     Indication: ABDOMINAL INFECTION
     Dosage: 150 MG, 2X/DAY
     Route: 041
     Dates: start: 20210731, end: 20210731

REACTIONS (2)
  - Arrhythmia [Recovering/Resolving]
  - Atrial tachycardia [Recovering/Resolving]

NARRATIVE: CASE EVENT DATE: 20210731
